FAERS Safety Report 11151673 (Version 1)
Quarter: 2015Q2

REPORT INFORMATION
  Report Type: Spontaneous
  Country: US (occurrence: US)
  Receive Date: 20150601
  Receipt Date: 20150601
  Transmission Date: 20150821
  Serious: Yes (Hospitalization, Other)
  Sender: FDA-Public Use
  Company Number: US-SHIRE-SPV1-2008-01015

PATIENT
  Age: 57 Year
  Sex: Female
  Weight: 79 kg

DRUGS (25)
  1. LAMICTAL [Suspect]
     Active Substance: LAMOTRIGINE
     Indication: ACCIDENTAL EXPOSURE TO PRODUCT
     Dosage: 350 MG, ONE DOSE
     Route: 065
     Dates: start: 20080421, end: 20080421
  2. ZOLOFT [Suspect]
     Active Substance: SERTRALINE HYDROCHLORIDE
     Indication: ACCIDENTAL EXPOSURE TO PRODUCT
     Dosage: 100 MG, ONE DOSE
     Route: 065
     Dates: start: 20080421, end: 20080421
  3. COLACE [Suspect]
     Active Substance: DOCUSATE SODIUM
     Indication: ACCIDENTAL EXPOSURE TO PRODUCT
     Dosage: 100 MG, ONE DOSE
     Route: 065
     Dates: start: 20080421, end: 20080421
  4. PREDNISOLONE. [Concomitant]
     Active Substance: PREDNISOLONE
     Indication: PRODUCT USED FOR UNKNOWN INDICATION
     Dosage: UNK, UNKNOWN
     Route: 065
  5. BAZEDOXIFENE ACETATE [Suspect]
     Active Substance: BAZEDOXIFENE ACETATE
     Indication: ENDOMETRIAL HYPERPLASIA
     Dosage: 1 DF (BZA 20 MG/CE 0.45 MG), 1X/DAY:QD
     Route: 048
     Dates: start: 20060501
  6. CLONAPIN [Suspect]
     Active Substance: CLONAZEPAM
     Indication: ACCIDENTAL EXPOSURE TO PRODUCT
     Dosage: 4.5 MG, ONE DOSE
     Route: 065
     Dates: start: 20080421, end: 20080421
  7. TYLENOL WITH CODEINE NO.3 [Concomitant]
     Active Substance: ACETAMINOPHEN\CODEINE PHOSPHATE
     Indication: PRODUCT USED FOR UNKNOWN INDICATION
     Route: 065
  8. VITAMIN E [Concomitant]
     Active Substance: .ALPHA.-TOCOPHEROL
     Indication: PRODUCT USED FOR UNKNOWN INDICATION
     Route: 065
  9. MELATONIN [Concomitant]
     Active Substance: MELATONIN
     Indication: PRODUCT USED FOR UNKNOWN INDICATION
     Dosage: 3 MG, 1X/DAY:QD
     Route: 065
  10. TEGRETOL [Suspect]
     Active Substance: CARBAMAZEPINE
     Indication: ACCIDENTAL EXPOSURE TO PRODUCT
     Dosage: 350 MG, ONE DOSE
     Route: 065
     Dates: start: 20080421, end: 20080421
  11. PROPRANOLOL [Concomitant]
     Active Substance: PROPRANOLOL\PROPRANOLOL HYDROCHLORIDE
     Indication: PRODUCT USED FOR UNKNOWN INDICATION
     Dosage: 40 MG, 1X/DAY:QD
     Route: 065
  12. MELATONIN [Suspect]
     Active Substance: MELATONIN
     Indication: ACCIDENTAL EXPOSURE TO PRODUCT
     Dosage: 175 MG, ONE DOSE
     Route: 065
     Dates: start: 20080421, end: 20080421
  13. IMITREX [Concomitant]
     Active Substance: SUMATRIPTAN\SUMATRIPTAN SUCCINATE
     Indication: PRODUCT USED FOR UNKNOWN INDICATION
     Route: 065
  14. TETRACYCLINE [Concomitant]
     Active Substance: TETRACYCLINE
     Indication: PRODUCT USED FOR UNKNOWN INDICATION
     Dosage: 500 MG, 1X/DAY:QD
     Route: 065
  15. ADVIL [Concomitant]
     Active Substance: IBUPROFEN
     Indication: PRODUCT USED FOR UNKNOWN INDICATION
     Dosage: 600 MG, 1X/DAY:QD
     Route: 065
  16. LIPITOR [Concomitant]
     Active Substance: ATORVASTATIN CALCIUM
     Indication: PRODUCT USED FOR UNKNOWN INDICATION
     Dosage: 20 MG, 1X/DAY:QD
     Route: 065
  17. FLUOXETINE [Concomitant]
     Active Substance: FLUOXETINE\FLUOXETINE HYDROCHLORIDE
     Indication: PRODUCT USED FOR UNKNOWN INDICATION
     Dosage: 20 MG, 1X/DAY:QD
     Route: 065
  18. BAZEDOXIFENE ACETATE [Suspect]
     Active Substance: BAZEDOXIFENE ACETATE
     Indication: PROPHYLAXIS
  19. ZANTAC [Suspect]
     Active Substance: RANITIDINE HYDROCHLORIDE
     Indication: ACCIDENTAL EXPOSURE TO PRODUCT
     Route: 065
     Dates: start: 20080421, end: 20080421
  20. AMITRIPTYLENE [Concomitant]
     Active Substance: AMITRIPTYLINE
     Indication: PRODUCT USED FOR UNKNOWN INDICATION
     Dosage: 25 MG, 1X/DAY:QD
     Route: 065
  21. CARBATROL [Suspect]
     Active Substance: CARBAMAZEPINE
     Indication: ACCIDENTAL EXPOSURE TO PRODUCT
     Dosage: 700 MG, ONE DOSE
     Route: 065
     Dates: start: 20080421, end: 20080421
  22. BAZEDOXIFENE ACETATE [Suspect]
     Active Substance: BAZEDOXIFENE ACETATE
     Indication: OSTEOPOROSIS
  23. VITAMINS NOS [Concomitant]
     Active Substance: VITAMINS
     Indication: PRODUCT USED FOR UNKNOWN INDICATION
     Route: 065
  24. PEPCID [Concomitant]
     Active Substance: FAMOTIDINE
     Indication: PRODUCT USED FOR UNKNOWN INDICATION
     Route: 065
  25. GLUCOSAMINE + CHONDROITIN [Concomitant]
     Indication: PRODUCT USED FOR UNKNOWN INDICATION
     Route: 065

REACTIONS (5)
  - Accidental exposure to product [Recovered/Resolved]
  - Confusional state [Recovered/Resolved]
  - Incontinence [Recovered/Resolved]
  - Unresponsive to stimuli [Recovered/Resolved]
  - Lethargy [Recovered/Resolved]

NARRATIVE: CASE EVENT DATE: 20080421
